FAERS Safety Report 5999516-6 (Version None)
Quarter: 2008Q4

REPORT INFORMATION
  Report Type: 
  Country: None (occurrence: None)
  Receive Date: 20081215
  Receipt Date: 20081210
  Transmission Date: 20090506
  Serious: Yes (Other)
  Sender: FDA-Public Use
  Company Number: US-ASTRAZENECA-2008AC03139

PATIENT
  Age: 34 Year
  Sex: Female

DRUGS (2)
  1. TAMOXIFEN [Suspect]
     Indication: BREAST CANCER
     Dates: start: 20050801
  2. RADIOTHERAPY [Concomitant]
     Indication: BREAST CANCER
     Dates: start: 20050801

REACTIONS (1)
  - LEIOMYOMA [None]
